FAERS Safety Report 9162506 (Version 1)
Quarter: 2013Q1

REPORT INFORMATION
  Report Type: Spontaneous
  Country: DK (occurrence: None)
  Receive Date: 20130225
  Receipt Date: 20130225
  Transmission Date: 20140127
  Serious: Yes (Hospitalization)
  Sender: FDA-Public Use
  Company Number: 2013MA001241

PATIENT
  Age: 56 Year
  Sex: Female
  Weight: 55 kg

DRUGS (1)
  1. PANTOPRAZOLE SODIUM [Suspect]
     Route: 048
     Dates: start: 20121006, end: 20121006

REACTIONS (2)
  - Apnoea [None]
  - Hypersensitivity [None]
